FAERS Safety Report 8389615 (Version 5)
Quarter: 2012Q4

REPORT INFORMATION
  Report Type: 
  Country: US (occurrence: US)
  Receive Date: 20120203
  Receipt Date: 20121011
  Transmission Date: 20130627
  Serious: Yes (Hospitalization)
  Sender: FDA-Public Use
  Company Number: US-ACTELION-A-NJ2011-55213

PATIENT
  Age: 62 Year
  Sex: Female

DRUGS (3)
  1. VELETRI [Suspect]
     Indication: PULMONARY ARTERIAL HYPERTENSION
     Dosage: 17 ng/kg, per min
     Route: 041
     Dates: start: 20100527
  2. ADCIRCA [Concomitant]
  3. COUMADIN [Concomitant]

REACTIONS (7)
  - Dehydration [Unknown]
  - Mouth ulceration [Unknown]
  - Catheter site infection [Unknown]
  - Catheter site pain [Unknown]
  - Catheter site discharge [Unknown]
  - Catheter site swelling [Unknown]
  - Catheter site erythema [Unknown]
